FAERS Safety Report 11064688 (Version 4)
Quarter: 2015Q4

REPORT INFORMATION
  Report Type: Report from Study
  Country: JP (occurrence: JP)
  Receive Date: 20150424
  Receipt Date: 20151118
  Transmission Date: 20160304
  Serious: Yes (Hospitalization, Other)
  Sender: FDA-Public Use
  Company Number: JP-PFIZER INC-2015144184

PATIENT
  Age: 72 Year
  Sex: Male
  Weight: 72 kg

DRUGS (5)
  1. LASIX [Suspect]
     Active Substance: FUROSEMIDE
     Dosage: 40 MG, DAILY
     Route: 048
  2. ALDACTONE A [Suspect]
     Active Substance: SPIRONOLACTONE
     Dosage: 25 MG, DAILY
     Route: 048
  3. APIXABAN [Suspect]
     Active Substance: APIXABAN
     Indication: THROMBOSIS PROPHYLAXIS
     Dosage: 5 MG, 2X/DAY
     Route: 048
     Dates: start: 20140207
  4. ASPIRIN. [Suspect]
     Active Substance: ASPIRIN
     Indication: MYOCARDIAL INFARCTION
     Dosage: 100 MG, UNK
     Route: 048
     Dates: end: 20140626
  5. MAINTATE [Concomitant]
     Active Substance: BISOPROLOL FUMARATE
     Indication: THROMBOSIS PROPHYLAXIS
     Dosage: UNK
     Route: 048

REACTIONS (3)
  - Gastrointestinal haemorrhage [Recovering/Resolving]
  - Anaemia [Unknown]
  - Renal impairment [Recovering/Resolving]

NARRATIVE: CASE EVENT DATE: 20140217
